FAERS Safety Report 7629639-7 (Version None)
Quarter: 2011Q3

REPORT INFORMATION
  Report Type: 
  Country: None (occurrence: None)
  Receive Date: 20110722
  Receipt Date: 20110707
  Transmission Date: 20111222
  Serious: Yes (Other)
  Sender: FDA-Public Use
  Company Number: DE-ROCHE-783772

PATIENT
  Sex: Female
  Weight: 62.2 kg

DRUGS (5)
  1. DEXAMETHASONE [Concomitant]
     Indication: PREMEDICATION
     Route: 048
     Dates: start: 20110516
  2. HERCEPTIN [Suspect]
     Route: 042
     Dates: start: 20110523, end: 20110523
  3. HERCEPTIN [Suspect]
     Route: 042
     Dates: start: 20110516, end: 20110516
  4. HERCEPTIN [Suspect]
     Route: 042
     Dates: start: 20110530
  5. DOCETAXEL [Concomitant]
     Route: 042
     Dates: start: 20110516

REACTIONS (6)
  - ASTHENIA [None]
  - SWELLING FACE [None]
  - ERYTHEMA [None]
  - PAIN IN EXTREMITY [None]
  - SKIN BURNING SENSATION [None]
  - TOOTHACHE [None]
